FAERS Safety Report 20712927 (Version 2)
Quarter: 2022Q2

REPORT INFORMATION
  Report Type: Spontaneous
  Country: JP (occurrence: JP)
  Receive Date: 20220415
  Receipt Date: 20220610
  Transmission Date: 20220721
  Serious: Yes (Death, Disabling, Other)
  Sender: FDA-Public Use
  Company Number: JP-JAZZ-2022-JP-011360

PATIENT
  Age: 53 Year
  Sex: Female
  Weight: 50.8 kg

DRUGS (3)
  1. DEFITELIO [Suspect]
     Active Substance: DEFIBROTIDE SODIUM
     Indication: Venoocclusive liver disease
     Dosage: 25 MILLIGRAM/KILOGRAM, QD
     Route: 042
     Dates: start: 20220217, end: 20220222
  2. PLATELETS [Concomitant]
     Active Substance: HUMAN PLATELET, ALLOGENIC
     Indication: Pulmonary alveolar haemorrhage
     Dosage: UNK
     Dates: start: 20220222
  3. CARBAZOCHROME SODIUM SULFONATE [Concomitant]
     Active Substance: CARBAZOCHROME SODIUM SULFONATE
     Indication: Pulmonary alveolar haemorrhage
     Dosage: UNK
     Dates: start: 20220222

REACTIONS (2)
  - Pulmonary alveolar haemorrhage [Not Recovered/Not Resolved]
  - Venoocclusive liver disease [Fatal]

NARRATIVE: CASE EVENT DATE: 20220222
